FAERS Safety Report 10803091 (Version 1)
Quarter: 2015Q1

REPORT INFORMATION
  Report Type: Spontaneous
  Country: AU (occurrence: AU)
  Receive Date: 20150217
  Receipt Date: 20150217
  Transmission Date: 20150721
  Serious: Yes (Other)
  Sender: FDA-Public Use
  Company Number: PHHY2015AU016774

PATIENT
  Sex: Male

DRUGS (1)
  1. TASIGNA [Suspect]
     Active Substance: NILOTINIB
     Indication: CHRONIC MYELOID LEUKAEMIA
     Route: 065
     Dates: start: 2010

REACTIONS (7)
  - Electrocardiogram QT interval abnormal [Unknown]
  - Carotid artery disease [Unknown]
  - Peripheral arterial occlusive disease [Unknown]
  - Pruritus [Unknown]
  - Stress urinary incontinence [Unknown]
  - Blood glucose increased [Unknown]
  - Intermittent claudication [Unknown]
